FAERS Safety Report 11328732 (Version 1)
Quarter: 2015Q3

REPORT INFORMATION
  Report Type: Report from Study
  Country: US (occurrence: US)
  Receive Date: 20150731
  Receipt Date: 20150731
  Transmission Date: 20151125
  Serious: Yes (Death)
  Sender: FDA-Public Use
  Company Number: US-BAXTER-2015BAX042197

PATIENT

DRUGS (4)
  1. DIPOTASSIUM PHOSPHATE [Suspect]
     Active Substance: POTASSIUM PHOSPHATE, DIBASIC
     Indication: FLUID REPLACEMENT
     Dosage: 20 MEQ/L
     Route: 042
  2. 0.9% SODIUM CHLORIDE INJECTION [Suspect]
     Active Substance: SODIUM CHLORIDE
     Indication: FLUID REPLACEMENT
     Dosage: 10-20 ML/KG
     Route: 042
  3. 0.45% SODIUM CHLORIDE INJECTION IN PLASTIC CONTAINER (PL 146?) [Suspect]
     Active Substance: SODIUM CHLORIDE
     Indication: FLUID REPLACEMENT
     Dosage: 3500 ML/M2/DAY
     Route: 042
  4. POTASSIUM ACETATE. [Suspect]
     Active Substance: POTASSIUM ACETATE
     Indication: FLUID REPLACEMENT
     Dosage: 20 MEQ/L
     Route: 042

REACTIONS (1)
  - Death [Fatal]
